FAERS Safety Report 15542733 (Version 1)
Quarter: 2018Q4

REPORT INFORMATION
  Report Type: Spontaneous
  Country: US (occurrence: US)
  Receive Date: 20181017
  Receipt Date: 20181017
  Transmission Date: 20190205
  Serious: No
  Sender: FDA-Public Use
  Company Number: None

PATIENT
  Age: 33 Year
  Sex: Female
  Weight: 92.08 kg

DRUGS (1)
  1. STELARA [Suspect]
     Active Substance: USTEKINUMAB
     Indication: PSORIASIS
     Dosage: INJECT 45 MG SUBCUTANEOUSLY AT WEEK 0 AND WEEK 4 AS DIRECTED
     Route: 058
     Dates: start: 201804

REACTIONS (2)
  - Abortion spontaneous [None]
  - Exposure during pregnancy [None]
